FAERS Safety Report 5920321-0 (Version None)
Quarter: 2008Q4

REPORT INFORMATION
  Report Type: 
  Country: None (occurrence: None)
  Receive Date: 20081016
  Receipt Date: 20081007
  Transmission Date: 20090506
  Serious: Yes (Death, Hospitalization, Other)
  Sender: FDA-Public Use
  Company Number: PHHY2008JP18586

PATIENT
  Sex: Male
  Weight: 47 kg

DRUGS (16)
  1. ZOMETA [Suspect]
     Indication: OESOPHAGEAL CARCINOMA
     Dosage: 4 MG (SINGLE DOSE)
     Route: 042
     Dates: start: 20080813, end: 20080813
  2. CALSED [Concomitant]
  3. DIOVAN [Concomitant]
     Dosage: 80 MG/DAY
     Route: 048
  4. CALONAL [Concomitant]
     Dosage: 4 DF/DAY
     Route: 048
  5. OXYCONTIN [Concomitant]
     Dosage: 80 MG/DAY
     Route: 048
     Dates: start: 20080728
  6. OXYCONTIN [Concomitant]
     Dosage: 120 MG/DAY
     Route: 048
  7. OXYCONTIN [Concomitant]
     Dosage: 160 MG/DAY
     Route: 048
  8. OXINORM [Concomitant]
     Dosage: UNK
     Route: 048
     Dates: start: 20080728
  9. LOXONIN [Concomitant]
     Dosage: UNK
     Route: 048
     Dates: start: 20080728
  10. NOVAMIN [Concomitant]
     Dosage: 3 DF/DAY
     Route: 048
     Dates: start: 20080728
  11. MAGNESIUM OXIDE [Concomitant]
     Dosage: 1.5 G/DAY
     Route: 048
     Dates: start: 20080728
  12. BLOPRESS [Concomitant]
     Dosage: 1 DF/DAY
     Route: 048
     Dates: start: 20080728
  13. TAKEPRON [Concomitant]
     Dosage: 1 DF/DAY
     Route: 048
  14. GABAPENTIN [Concomitant]
     Dosage: 1 DF/DAY
     Route: 048
  15. GABAPENTIN [Concomitant]
     Dosage: 2 DF/DAY
     Route: 048
  16. GABAPENTIN [Concomitant]
     Dosage: 3 DF/DAY
     Route: 048

REACTIONS (13)
  - ASPARTATE AMINOTRANSFERASE INCREASED [None]
  - BACK PAIN [None]
  - BLOOD ALKALINE PHOSPHATASE INCREASED [None]
  - BLOOD CREATININE INCREASED [None]
  - BLOOD LACTATE DEHYDROGENASE INCREASED [None]
  - BLOOD POTASSIUM INCREASED [None]
  - INFECTION [None]
  - MALIGNANT NEOPLASM PROGRESSION [None]
  - PAIN [None]
  - PYREXIA [None]
  - RENAL FAILURE ACUTE [None]
  - TUMOUR LYSIS SYNDROME [None]
  - URINE OUTPUT DECREASED [None]
